FAERS Safety Report 23607817 (Version 1)
Quarter: 2024Q1

REPORT INFORMATION
  Report Type: Spontaneous
  Country: FR (occurrence: None)
  Receive Date: 20240307
  Receipt Date: 20240307
  Transmission Date: 20240410
  Serious: Yes (Disabling)
  Sender: FDA-Public Use
  Company Number: None

PATIENT
  Age: 39 Year
  Sex: Male
  Weight: 73 kg

DRUGS (1)
  1. VENLAFAXINE HYDROCHLORIDE [Suspect]
     Active Substance: VENLAFAXINE HYDROCHLORIDE
     Indication: Panic disorder
     Dosage: OTHER QUANTITY : 1 CAPSULE(S);?FREQUENCY : DAILY;?
     Route: 048
     Dates: start: 20090301, end: 20240123

REACTIONS (8)
  - Drug withdrawal syndrome [None]
  - Electric shock sensation [None]
  - Nausea [None]
  - Dizziness [None]
  - Diarrhoea [None]
  - Depressed mood [None]
  - Anxiety [None]
  - Poor quality sleep [None]

NARRATIVE: CASE EVENT DATE: 20240201
